FAERS Safety Report 23459576 (Version 1)
Quarter: 2024Q1

REPORT INFORMATION
  Report Type: Spontaneous
  Country: US (occurrence: US)
  Receive Date: 20240131
  Receipt Date: 20240131
  Transmission Date: 20240410
  Serious: Yes (Hospitalization)
  Sender: FDA-Public Use
  Company Number: US-TEVA-VS-3149295

PATIENT
  Age: 67 Year
  Sex: Female

DRUGS (17)
  1. FILGRASTIM [Suspect]
     Active Substance: FILGRASTIM
     Indication: Pure white cell aplasia
     Route: 065
  2. PREDNISONE [Concomitant]
     Active Substance: PREDNISONE
     Indication: Pure white cell aplasia
     Route: 065
  3. ACYCLOVIR [Concomitant]
     Active Substance: ACYCLOVIR
     Indication: Klebsiella test positive
     Route: 065
  4. GABAPENTIN [Concomitant]
     Active Substance: GABAPENTIN
     Indication: Product used for unknown indication
     Route: 065
  5. PACLITAXEL [Concomitant]
     Active Substance: PACLITAXEL
     Indication: Lung adenocarcinoma
     Route: 065
  6. VALACYCLOVIR [Concomitant]
     Active Substance: VALACYCLOVIR HYDROCHLORIDE
     Indication: Klebsiella test positive
     Route: 065
  7. CASPOFUNGIN [Concomitant]
     Active Substance: CASPOFUNGIN
     Indication: Klebsiella test positive
     Route: 065
  8. MYCOPHENOLIC ACID [Concomitant]
     Active Substance: MYCOPHENOLIC ACID
     Indication: Rheumatoid arthritis
     Route: 065
  9. DURVALUMAB [Suspect]
     Active Substance: DURVALUMAB
     Indication: Lung adenocarcinoma
     Route: 065
     Dates: end: 202202
  10. VANCOMYCIN [Concomitant]
     Active Substance: VANCOMYCIN
     Indication: Klebsiella test positive
     Route: 065
  11. CYCLOSPORINE [Suspect]
     Active Substance: CYCLOSPORINE
     Indication: Pure white cell aplasia
     Dosage: DIVIDED INTO 2?DAILY DOSES: 150MG IN THE MORNING AND 100MG IN THE EVENING ALONG
     Route: 065
  12. MEROPENEM [Concomitant]
     Active Substance: MEROPENEM
     Indication: Klebsiella test positive
     Route: 065
  13. SULFASALAZINE [Concomitant]
     Active Substance: SULFASALAZINE
     Indication: Rheumatoid arthritis
     Route: 065
  14. CEFEPIME [Concomitant]
     Active Substance: CEFEPIME HYDROCHLORIDE
     Indication: Klebsiella test positive
     Route: 065
  15. CARBOPLATIN [Concomitant]
     Active Substance: CARBOPLATIN
     Indication: Lung adenocarcinoma
     Route: 065
  16. METRONIDAZOLE [Concomitant]
     Active Substance: METRONIDAZOLE
     Indication: Klebsiella test positive
     Route: 065
  17. FLUCONAZOLE [Concomitant]
     Active Substance: FLUCONAZOLE
     Indication: Klebsiella test positive
     Route: 065

REACTIONS (3)
  - Pure white cell aplasia [Unknown]
  - Drug ineffective [Unknown]
  - Medication error [Unknown]

NARRATIVE: CASE EVENT DATE: 20220101
